FAERS Safety Report 23933551 (Version 1)
Quarter: 2024Q2

REPORT INFORMATION
  Report Type: Spontaneous
  Country: US (occurrence: None)
  Receive Date: 20240603
  Receipt Date: 20240603
  Transmission Date: 20240716
  Serious: Yes (Other)
  Sender: FDA-Public Use
  Company Number: None

PATIENT
  Sex: Female

DRUGS (1)
  1. HUMIRA [Suspect]
     Active Substance: ADALIMUMAB
     Indication: Crohn^s disease
     Dosage: 80MG EVERY 14 DAYS UNDER THE SKIN
     Route: 058
     Dates: start: 202405

REACTIONS (3)
  - Abdominal pain [None]
  - Small intestinal resection [None]
  - Colectomy [None]
